FAERS Safety Report 4987773-4 (Version None)
Quarter: 2006Q2

REPORT INFORMATION
  Report Type: 
  Country: None (occurrence: None)
  Receive Date: 20060426
  Receipt Date: 20060407
  Transmission Date: 20061013
  Serious: No
  Sender: FDA-Public Use
  Company Number: GB200604001327

PATIENT
  Age: 20 Year
  Sex: Female

DRUGS (2)
  1. ZYPREXA [Suspect]
     Indication: PSYCHOTIC DISORDER
     Dosage: 20 MG, DAILY (1/D), ORAL
     Route: 048
  2. CLOZAPINE [Concomitant]

REACTIONS (2)
  - MALAISE [None]
  - NEUTROPENIA [None]
